FAERS Safety Report 10197473 (Version 1)
Quarter: 2014Q2

REPORT INFORMATION
  Report Type: Spontaneous
  Country: US (occurrence: US)
  Receive Date: 20140527
  Receipt Date: 20140527
  Transmission Date: 20141212
  Serious: No
  Sender: FDA-Public Use
  Company Number: US-NOVEN-14US008796

PATIENT
  Age: 39 Year
  Sex: Female

DRUGS (2)
  1. MINIVELLE [Suspect]
     Indication: HOT FLUSH
     Dosage: 0.075 MG, UNK
     Route: 062
  2. MINIVELLE [Suspect]
     Indication: NIGHT SWEATS

REACTIONS (5)
  - Wrong technique in drug usage process [Not Recovered/Not Resolved]
  - Incorrect drug administration duration [Not Recovered/Not Resolved]
  - Accidental exposure to product [Recovered/Resolved]
  - No adverse event [None]
  - Product quality issue [Not Recovered/Not Resolved]
